FAERS Safety Report 4770193-5 (Version None)
Quarter: 2005Q3

REPORT INFORMATION
  Report Type: 
  Country: None (occurrence: None)
  Receive Date: 20050915
  Receipt Date: 20050901
  Transmission Date: 20060218
  Serious: Yes (Hospitalization, Disabling, Other)
  Sender: FDA-Public Use
  Company Number: FR-JNJFOC-20050402748

PATIENT
  Sex: Female
  Weight: 70 kg

DRUGS (11)
  1. EPITOMAX [Suspect]
     Route: 048
  2. EPITOMAX [Suspect]
     Indication: MIGRAINE PROPHYLAXIS
     Route: 048
  3. KETOPROFEN [Concomitant]
     Indication: MIGRAINE
  4. PRONTALGINE [Concomitant]
  5. PRONTALGINE [Concomitant]
  6. PRONTALGINE [Concomitant]
  7. PRONTALGINE [Concomitant]
     Indication: MIGRAINE
     Dosage: INITIATED AT THE END OF 2004
  8. EFFERALGAN [Concomitant]
     Indication: MIGRAINE
  9. LUTENYL [Concomitant]
  10. NEXIUM [Concomitant]
  11. RELPAX [Concomitant]
     Indication: MIGRAINE

REACTIONS (4)
  - ARTHRALGIA [None]
  - MUSCULOSKELETAL PAIN [None]
  - OSTEONECROSIS [None]
  - PARAESTHESIA [None]
